FAERS Safety Report 8521462-4 (Version None)
Quarter: 2012Q3

REPORT INFORMATION
  Report Type: 
  Country: None (occurrence: None)
  Receive Date: 20120719
  Receipt Date: 20120716
  Transmission Date: 20120928
  Serious: No
  Sender: FDA-Public Use
  Company Number: US-TEVA-348792USA

PATIENT
  Sex: Female
  Weight: 60.382 kg

DRUGS (9)
  1. CARBIDOPA + LEVODOPA [Concomitant]
     Indication: PARKINSON'S DISEASE
     Dosage: 25/100 MG, 4 TIMES DAILY
     Route: 048
  2. VENLAFAXINE [Concomitant]
     Dosage: UNKNOWN
     Route: 048
  3. NEXIUM [Concomitant]
     Dosage: UNKNOWN
     Route: 048
  4. CRESTOR [Concomitant]
     Indication: HYPERLIPIDAEMIA
     Dosage: UNKNOWN
     Route: 048
  5. RAMIPRIL [Concomitant]
     Dosage: UNKNOWN
     Route: 048
  6. CARVEDILOL [Concomitant]
     Dosage: UNKNOWN
     Route: 048
  7. MAGNESIUM SULFATE [Concomitant]
     Indication: MEDICAL DIET
     Dosage: UNKNOWN
     Route: 048
  8. METROGEL [Concomitant]
     Dosage: UNKNOWN
     Route: 061
  9. AZILECT [Suspect]
     Indication: PARKINSON'S DISEASE
     Dosage: .5 MILLIGRAM;
     Route: 048

REACTIONS (4)
  - DIZZINESS [None]
  - HALLUCINATION [None]
  - FALL [None]
  - HYPOTENSION [None]
